FAERS Safety Report 8397823 (Version 2)
Quarter: 2012Q4

REPORT INFORMATION
  Report Type: Report from Study
  Country: US (occurrence: US)
  Receive Date: 20120209
  Receipt Date: 20121108
  Transmission Date: 20130627
  Serious: Yes (Other)
  Sender: FDA-Public Use
  Company Number: US-ROCHE-1033709

PATIENT
  Age: 9 Year
  Sex: Male
  Weight: 68.8 kg

DRUGS (2)
  1. CAPECITABINE [Suspect]
     Indication: BRAIN STEM GLIOMA
     Dosage: last dose prior to SAE: 13/sep/2011
     Route: 048
     Dates: start: 20110427
  2. BEVACIZUMAB [Concomitant]
     Route: 065
     Dates: start: 20111116

REACTIONS (1)
  - Central nervous system necrosis [Not Recovered/Not Resolved]
